FAERS Safety Report 4875299-8 (Version None)
Quarter: 2006Q1

REPORT INFORMATION
  Report Type: 
  Country: None (occurrence: None)
  Receive Date: 20060109
  Receipt Date: 20011003
  Transmission Date: 20060701
  Serious: Yes (Hospitalization, Disabling)
  Sender: FDA-Public Use
  Company Number: US-MERCK-01100585

PATIENT
  Age: 59 Year
  Sex: Male
  Weight: 78 kg

DRUGS (1)
  1. VIOXX [Suspect]
     Indication: ARTHRITIS
     Route: 048
     Dates: start: 20010318, end: 20010919

REACTIONS (4)
  - CEREBROVASCULAR ACCIDENT [None]
  - DUODENAL ULCER [None]
  - PERIRECTAL ABSCESS [None]
  - PULMONARY OEDEMA [None]
